FAERS Safety Report 8312311-8 (Version None)
Quarter: 2012Q2

REPORT INFORMATION
  Report Type: 
  Country: None (occurrence: None)
  Receive Date: 20120425
  Receipt Date: 20120413
  Transmission Date: 20120825
  Serious: Yes (Life-Threatening, Hospitalization)
  Sender: FDA-Public Use
  Company Number: ES-ELI_LILLY_AND_COMPANY-ES201111004817

PATIENT
  Age: 40 Year
  Sex: Female

DRUGS (5)
  1. ASPIRIN [Concomitant]
     Dosage: 100 MG, QD
  2. EFFIENT [Suspect]
     Indication: ACUTE MYOCARDIAL INFARCTION
     Dosage: 10 MG, QD
     Route: 048
     Dates: start: 20110616, end: 20110712
  3. CLOPIDOGREL [Concomitant]
     Dosage: 300 MG, SINGLE LOADING DOSE
  4. EFFIENT [Suspect]
     Dosage: 60 MG, SINGLE LOADING DOSE
  5. ABCIXIMAB [Concomitant]

REACTIONS (2)
  - HYPERSENSITIVITY [None]
  - CARDIOGENIC SHOCK [None]
